FAERS Safety Report 16246531 (Version 1)
Quarter: 2019Q2

REPORT INFORMATION
  Report Type: Spontaneous
  Country: CN (occurrence: CN)
  Receive Date: 20190427
  Receipt Date: 20190427
  Transmission Date: 20190711
  Serious: Yes (Hospitalization)
  Sender: FDA-Public Use
  Company Number: CN-ABBVIE-19P-035-2755156-00

PATIENT
  Age: 68 Year
  Sex: Male
  Weight: 60 kg

DRUGS (1)
  1. LIPANTHYL [Suspect]
     Active Substance: FENOFIBRATE
     Indication: HYPERLIPIDAEMIA
     Route: 048
     Dates: start: 20181203, end: 20190331

REACTIONS (8)
  - Fatigue [Recovering/Resolving]
  - Drug-induced liver injury [Recovering/Resolving]
  - Aspartate aminotransferase abnormal [Recovering/Resolving]
  - Alanine aminotransferase abnormal [Recovering/Resolving]
  - Gamma-glutamyltransferase abnormal [Recovering/Resolving]
  - Ocular icterus [Recovering/Resolving]
  - Decreased appetite [Recovering/Resolving]
  - Yellow skin [Recovering/Resolving]

NARRATIVE: CASE EVENT DATE: 20190324
